FAERS Safety Report 17521424 (Version 1)
Quarter: 2020Q1

REPORT INFORMATION
  Report Type: Spontaneous
  Country: US (occurrence: US)
  Receive Date: 20200310
  Receipt Date: 20200310
  Transmission Date: 20200409
  Serious: Yes (Life-Threatening)
  Sender: FDA-Public Use
  Company Number: None

PATIENT
  Age: 64 Year
  Sex: Male

DRUGS (2)
  1. VERAPAMIL [Suspect]
     Active Substance: VERAPAMIL HYDROCHLORIDE
     Dosage: ?          OTHER ROUTE:RADIAL SHEATH?
  2. NITROGLYCERIN. [Suspect]
     Active Substance: NITROGLYCERIN
     Dosage: ?          OTHER ROUTE:RADIAL SHEATH?

REACTIONS (4)
  - Procedural hypotension [None]
  - Cardiac arrest [None]
  - Cardiac procedure complication [None]
  - Bradycardia [None]

NARRATIVE: CASE EVENT DATE: 20200309
